FAERS Safety Report 6882158-8 (Version None)
Quarter: 2010Q3

REPORT INFORMATION
  Report Type: 
  Country: None (occurrence: None)
  Receive Date: 20100729
  Receipt Date: 20100720
  Transmission Date: 20110219
  Serious: No
  Sender: FDA-Public Use
  Company Number: IT-ASTRAZENECA-2010SE34047

PATIENT
  Age: 25063 Day
  Sex: Male

DRUGS (3)
  1. SEROQUEL [Suspect]
     Indication: MANIA
     Route: 048
     Dates: start: 20100303
  2. DEPAKENE [Suspect]
     Indication: MANIA
     Route: 048
     Dates: start: 20091111
  3. CLOPIXOL [Suspect]
     Indication: MANIA
     Route: 030
     Dates: start: 20100604, end: 20100628

REACTIONS (1)
  - LEUKOPENIA [None]
